FAERS Safety Report 10158364 (Version 2)
Quarter: 2014Q2

REPORT INFORMATION
  Report Type: Report from Study
  Country: CA (occurrence: CA)
  Receive Date: 20140507
  Receipt Date: 20140507
  Transmission Date: 20141212
  Serious: Yes (Death, Other)
  Sender: FDA-Public Use
  Company Number: CA-ABBVIE-14P-028-1228261-00

PATIENT
  Age: 90 Year
  Sex: Female

DRUGS (1)
  1. HUMIRA [Suspect]
     Indication: CROHN^S DISEASE
     Route: 058
     Dates: start: 20090210

REACTIONS (3)
  - Death [Fatal]
  - Hip fracture [Not Recovered/Not Resolved]
  - Fall [Recovered/Resolved]
